FAERS Safety Report 19874490 (Version 1)
Quarter: 2021Q3

REPORT INFORMATION
  Report Type: Spontaneous
  Country: US (occurrence: US)
  Receive Date: 20210922
  Receipt Date: 20210922
  Transmission Date: 20211014
  Serious: No
  Sender: FDA-Public Use
  Company Number: US-SA-2021SA310934

PATIENT
  Age: 2 Year
  Sex: Female

DRUGS (2)
  1. PEDIALYTE [ELECTROLYTES NOS;GLUCOSE] [Concomitant]
     Active Substance: DEXTROSE\ELECTROLYTES NOS
     Dosage: UNK
  2. CHILDREN^S ALLEGRA ALLERGY [Suspect]
     Active Substance: FEXOFENADINE HYDROCHLORIDE
     Indication: NASOPHARYNGITIS
     Dosage: 5 ML, Q12H
     Dates: start: 202108

REACTIONS (1)
  - Pyrexia [Unknown]
